FAERS Safety Report 19924157 (Version 1)
Quarter: 2021Q4

REPORT INFORMATION
  Report Type: Report from Study
  Country: CO (occurrence: CO)
  Receive Date: 20211005
  Receipt Date: 20211005
  Transmission Date: 20220304
  Serious: Yes (Death, Hospitalization, Other)
  Sender: FDA-Public Use
  Company Number: CO-ASTRAZENECA-2021A757190

PATIENT
  Age: 6 Month
  Sex: Male
  Weight: 3 kg

DRUGS (1)
  1. SYNAGIS [Suspect]
     Active Substance: PALIVIZUMAB
     Indication: Respiratory disorder
     Route: 030
     Dates: start: 20210630, end: 20210826

REACTIONS (1)
  - Infection [Fatal]

NARRATIVE: CASE EVENT DATE: 20210926
